FAERS Safety Report 5789290-0 (Version None)
Quarter: 2008Q2

REPORT INFORMATION
  Report Type: 
  Country: None (occurrence: None)
  Receive Date: 20080625
  Receipt Date: 20080625
  Transmission Date: 20081010
  Serious: Yes (Hospitalization, Other)
  Sender: FDA-Public Use
  Company Number: None

PATIENT
  Age: 47 Year
  Sex: Male
  Weight: 68.0396 kg

DRUGS (1)
  1. ZOLPIDEM [Suspect]
     Indication: INSOMNIA
     Dosage: 10MG 1 QHS PO
     Route: 048
     Dates: start: 20080101, end: 20080601

REACTIONS (3)
  - AMNESIA [None]
  - INCOHERENT [None]
  - ROAD TRAFFIC ACCIDENT [None]
